FAERS Safety Report 9771019 (Version 1)
Quarter: 2013Q4

REPORT INFORMATION
  Report Type: Report from Study
  Country: DZ (occurrence: DZ)
  Receive Date: 20131218
  Receipt Date: 20131218
  Transmission Date: 20140711
  Serious: Yes (Other)
  Sender: FDA-Public Use
  Company Number: DZ-SHIRE-ALL1-2013-08612

PATIENT
  Age: 8 Year
  Sex: Male
  Weight: 40 kg

DRUGS (1)
  1. IDURSULFASE [Suspect]
     Indication: MUCOPOLYSACCHARIDOSIS II
     Dosage: 0.5 MG/KG, 1X/WEEK
     Route: 041

REACTIONS (4)
  - Thrombocytopenic purpura [Recovered/Resolved]
  - Angioedema [Recovering/Resolving]
  - Pruritus [Recovered/Resolved]
  - Infusion related reaction [Recovered/Resolved]
